FAERS Safety Report 9502107 (Version 2)
Quarter: 2013Q4

REPORT INFORMATION
  Report Type: Report from Study
  Country: CN (occurrence: CN)
  Receive Date: 20130905
  Receipt Date: 20131030
  Transmission Date: 20140711
  Serious: Yes (Other)
  Sender: FDA-Public Use
  Company Number: CN-US-EMD SERONO, INC.-7230363

PATIENT
  Sex: Female
  Weight: 15 kg

DRUGS (2)
  1. SAIZEN [Suspect]
     Indication: GROWTH HORMONE DEFICIENCY
  2. SAIZEN [Suspect]

REACTIONS (2)
  - Spinal cord disorder [Unknown]
  - Injection site rash [Unknown]
